FAERS Safety Report 26053270 (Version 4)
Quarter: 2025Q4

REPORT INFORMATION
  Report Type: Spontaneous
  Country: CN (occurrence: CN)
  Receive Date: 20251117
  Receipt Date: 20251226
  Transmission Date: 20260117
  Serious: Yes (Death)
  Sender: NOVARTIS
  Company Number: CN-002147023-NVSC2025CN175984

PATIENT
  Sex: Female

DRUGS (3)
  1. DABRAFENIB [Suspect]
     Active Substance: DABRAFENIB
     Indication: Non-small cell lung cancer metastatic
     Dosage: 75 MG (75 MG X120S)
     Route: 048
     Dates: start: 20250729
  2. DABRAFENIB [Suspect]
     Active Substance: DABRAFENIB
     Dosage: 150 MG, BID
     Route: 048
     Dates: start: 20250729
  3. TRAMETINIB [Suspect]
     Active Substance: TRAMETINIB
     Indication: Non-small cell lung cancer metastatic
     Dosage: 2 MG (2 MG X 30S)
     Route: 048
     Dates: start: 20250729

REACTIONS (2)
  - Non-small cell lung cancer metastatic [Fatal]
  - Vomiting [Unknown]

NARRATIVE: CASE EVENT DATE: 20251101
